FAERS Safety Report 12397250 (Version 5)
Quarter: 2016Q3

REPORT INFORMATION
  Report Type: Spontaneous
  Country: US (occurrence: US)
  Receive Date: 20160524
  Receipt Date: 20160905
  Transmission Date: 20161109
  Serious: No
  Sender: FDA-Public Use
  Company Number: US-PFIZER INC-2016252308

PATIENT
  Age: 77 Year
  Sex: Female
  Weight: 56.24 kg

DRUGS (2)
  1. IBRANCE [Suspect]
     Active Substance: PALBOCICLIB
     Indication: BREAST CANCER METASTATIC
     Dosage: 125 MG, CYCLIC (1 CAPSULE FOR DAYS 1-21, EVERY 28 DAY)
     Route: 048
     Dates: start: 20160424
  2. IBRANCE [Suspect]
     Active Substance: PALBOCICLIB
     Dosage: 125 MG, CYCLIC (D1-D21 Q28D)
     Route: 048
     Dates: start: 20160424

REACTIONS (9)
  - Nausea [Recovered/Resolved]
  - Headache [Recovered/Resolved]
  - Erythema [Unknown]
  - Blood potassium decreased [Unknown]
  - Disease progression [Unknown]
  - Neuropathy peripheral [Unknown]
  - Breast cancer [Unknown]
  - Peripheral swelling [Unknown]
  - Insomnia [Recovered/Resolved]

NARRATIVE: CASE EVENT DATE: 20160518
